FAERS Safety Report 21844771 (Version 1)
Quarter: 2023Q1

REPORT INFORMATION
  Report Type: Spontaneous
  Country: US (occurrence: US)
  Receive Date: 20230110
  Receipt Date: 20230110
  Transmission Date: 20230418
  Serious: No
  Sender: FDA-Public Use
  Company Number: US-MYLANLABS-2022M1136103

PATIENT
  Sex: Female
  Weight: 79 kg

DRUGS (1)
  1. LATANOPROST [Suspect]
     Active Substance: LATANOPROST
     Indication: Glaucoma
     Dosage: UNK UNK, PM (ONE DROP IN EACH EYE EVERY NIGHT)
     Route: 065

REACTIONS (3)
  - COVID-19 [Unknown]
  - Product quality issue [Unknown]
  - Device use issue [Unknown]
